FAERS Safety Report 5179359-6 (Version None)
Quarter: 2006Q4

REPORT INFORMATION
  Report Type: 
  Country: None (occurrence: None)
  Receive Date: 20061219
  Receipt Date: 20061122
  Transmission Date: 20070319
  Serious: Yes (Hospitalization)
  Sender: FDA-Public Use
  Company Number: US-SANOFI-SYNTHELABO-A03200607447

PATIENT
  Age: 68 Year
  Sex: Female

DRUGS (5)
  1. OTHER MEDICATIONS (NOS) [Concomitant]
     Dosage: UNK
     Route: 048
  2. ASPIRIN [Concomitant]
     Dosage: UNK
     Route: 048
  3. ASPIRIN [Concomitant]
     Dosage: UNK
     Route: 048
  4. PLAVIX [Suspect]
     Indication: STENT PLACEMENT
     Route: 048
  5. PLAVIX [Suspect]
     Indication: CARDIAC PACEMAKER INSERTION
     Route: 048

REACTIONS (5)
  - ANGINA UNSTABLE [None]
  - BLOOD PRESSURE DECREASED [None]
  - COLLAPSE OF LUNG [None]
  - ILL-DEFINED DISORDER [None]
  - PAIN [None]
